FAERS Safety Report 9230560 (Version 1)
Quarter: 2013Q2

REPORT INFORMATION
  Report Type: Spontaneous
  Country: GB (occurrence: None)
  Receive Date: 20130411
  Receipt Date: 20130411
  Transmission Date: 20140414
  Serious: Yes (Hospitalization)
  Sender: FDA-Public Use
  Company Number: E2B_00000717

PATIENT
  Age: 65 Year
  Sex: Female
  Weight: 69.85 kg

DRUGS (3)
  1. SIMVASTATIN (SIMVASTATIN) [Suspect]
     Indication: BLOOD CHOLESTEROL INCREASED
     Dosage: UNKNOWN (UNKNOWN, UNKNOWN), ORAL
     Route: 048
     Dates: start: 20130117, end: 20130118
  2. COD LIVER OIL (UNKNOWN) [Concomitant]
  3. ACETAMINOPHEN (UNKNOWN) (ACETAMINOPHEN) UNK, UNKUNK [Concomitant]

REACTIONS (10)
  - Flushing [None]
  - Headache [None]
  - Memory impairment [None]
  - Transient global amnesia [None]
  - Pain in extremity [None]
  - Repetitive speech [None]
  - Fatigue [None]
  - Urinary tract infection [None]
  - Vertigo [None]
  - Muscular weakness [None]
